FAERS Safety Report 14637975 (Version 1)
Quarter: 2018Q1

REPORT INFORMATION
  Report Type: Spontaneous
  Country: US (occurrence: US)
  Receive Date: 20180313
  Receipt Date: 20180313
  Transmission Date: 20180509
  Serious: No
  Sender: FDA-Public Use
  Company Number: None

PATIENT
  Age: 56 Year
  Sex: Female
  Weight: 62.55 kg

DRUGS (1)
  1. CELECOXIB. [Suspect]
     Active Substance: CELECOXIB
     Indication: ARTHRALGIA
     Dosage: ?          QUANTITY:60 CAPSULE(S);?
     Route: 048
     Dates: start: 20180312, end: 20180312

REACTIONS (6)
  - Product substitution issue [None]
  - Dyspepsia [None]
  - Eructation [None]
  - Abdominal discomfort [None]
  - Dysgeusia [None]
  - Abdominal pain upper [None]

NARRATIVE: CASE EVENT DATE: 20180312
